FAERS Safety Report 20161717 (Version 1)
Quarter: 2021Q4

REPORT INFORMATION
  Report Type: Spontaneous
  Country: IL (occurrence: IL)
  Receive Date: 20211208
  Receipt Date: 20211208
  Transmission Date: 20220303
  Serious: Yes (Disabling)
  Sender: FDA-Public Use
  Company Number: IL-ORGANON-O2112ISR000137

PATIENT
  Age: 23 Year
  Sex: Male

DRUGS (1)
  1. PROPECIA [Suspect]
     Active Substance: FINASTERIDE
     Indication: Alopecia
     Dosage: 1 GRAM PER DAY
     Route: 048
     Dates: start: 2017

REACTIONS (13)
  - Mental status changes [Recovering/Resolving]
  - Feeling abnormal [Unknown]
  - Dissociation [Recovering/Resolving]
  - Feeling abnormal [Recovering/Resolving]
  - Thought blocking [Recovering/Resolving]
  - Anxiety [Recovering/Resolving]
  - Fear [Recovering/Resolving]
  - Hyperhidrosis [Recovering/Resolving]
  - Heart rate increased [Recovering/Resolving]
  - Ill-defined disorder [Recovering/Resolving]
  - Dizziness [Unknown]
  - Dizziness [Recovering/Resolving]
  - Depression [Recovering/Resolving]

NARRATIVE: CASE EVENT DATE: 20170715
